FAERS Safety Report 8812583 (Version 2)
Quarter: 2013Q1

REPORT INFORMATION
  Report Type: Spontaneous
  Country: US (occurrence: US)
  Receive Date: 20120927
  Receipt Date: 20130115
  Transmission Date: 20140127
  Serious: No
  Sender: FDA-Public Use
  Company Number: US-009507513-1209USA008908

PATIENT
  Age: 80 Year
  Sex: Female

DRUGS (5)
  1. JANUVIA [Suspect]
     Indication: DIABETES MELLITUS
     Dosage: 50 MG, QD
     Route: 048
     Dates: start: 20120828
  2. GLIPIZIDE [Concomitant]
  3. SYNTHROID [Concomitant]
  4. RAMIPRIL [Concomitant]
  5. CRESTOR [Concomitant]

REACTIONS (2)
  - Abdominal pain [Unknown]
  - Product quality issue [Unknown]
